FAERS Safety Report 7373593-2 (Version None)
Quarter: 2011Q1

REPORT INFORMATION
  Report Type: 
  Country: None (occurrence: None)
  Receive Date: 20110314
  Receipt Date: 20110302
  Transmission Date: 20110831
  Serious: Yes (Disabling)
  Sender: FDA-Public Use
  Company Number: 2011AP000386

PATIENT
  Age: 75 Year
  Sex: Female

DRUGS (1)
  1. ALENDRONATE SODIUM [Suspect]
     Indication: OSTEOPOROSIS
     Dosage: 70 MG;TAB;PO
     Route: 048
     Dates: start: 20110129, end: 20110213

REACTIONS (3)
  - PAIN IN JAW [None]
  - PAIN [None]
  - TENDERNESS [None]
